FAERS Safety Report 5165227-2 (Version None)
Quarter: 2006Q4

REPORT INFORMATION
  Report Type: 
  Country: None (occurrence: None)
  Receive Date: 20061124
  Receipt Date: 20061113
  Transmission Date: 20070319
  Serious: Yes (Other)
  Sender: FDA-Public Use
  Company Number: 2006140739

PATIENT
  Sex: Female

DRUGS (3)
  1. ALDACTONE [Suspect]
     Indication: HAIR GROWTH ABNORMAL
     Dosage: 100 MG (100 MG, FREUENCY: DAILY) ORAL
     Route: 048
     Dates: start: 20050101
  2. ALDACTONE [Suspect]
     Indication: HORMONE LEVEL ABNORMAL
     Dosage: 100 MG (100 MG, FREUENCY: DAILY) ORAL
     Route: 048
     Dates: start: 20050101
  3. DROSPIRENONE/ETHINYLESTRADIOL (DROSPIRENONE, ETHINYLESTRADIOL) [Concomitant]

REACTIONS (4)
  - ANTI-THYROID ANTIBODY POSITIVE [None]
  - BLOOD CORTISOL INCREASED [None]
  - GAMMA-GLUTAMYLTRANSFERASE INCREASED [None]
  - THYROIDITIS [None]
